FAERS Safety Report 9137721 (Version 2)
Quarter: 2013Q1

REPORT INFORMATION
  Report Type: Spontaneous
  Country: AU (occurrence: AU)
  Receive Date: 20130304
  Receipt Date: 20130315
  Transmission Date: 20140127
  Serious: Yes (Hospitalization, Other)
  Sender: FDA-Public Use
  Company Number: PHHY2013AU020923

PATIENT
  Age: 75 None
  Sex: Female

DRUGS (1)
  1. ACLASTA [Suspect]
     Dosage: 5 MG, UNK
     Route: 042
     Dates: start: 20120319

REACTIONS (3)
  - Breast cancer [Recovered/Resolved]
  - Sinus arrest [Recovered/Resolved]
  - Bradycardia [Recovered/Resolved]
